FAERS Safety Report 16355503 (Version 1)
Quarter: 2019Q2

REPORT INFORMATION
  Report Type: Spontaneous
  Country: FR (occurrence: FR)
  Receive Date: 20190525
  Receipt Date: 20190525
  Transmission Date: 20190711
  Serious: Yes (Hospitalization)
  Sender: FDA-Public Use
  Company Number: FR-ACCORD-129150

PATIENT
  Age: 72 Year
  Sex: Male
  Weight: 109 kg

DRUGS (18)
  1. CETIRIZINE [Concomitant]
     Active Substance: CETIRIZINE HYDROCHLORIDE
  2. FUROSEMIDE. [Concomitant]
     Active Substance: FUROSEMIDE
  3. FLUOXETINE/FLUOXETINE HYDROCHLORIDE [Concomitant]
  4. DIFFU K [Concomitant]
     Active Substance: POTASSIUM CHLORIDE
  5. XATRAL [Concomitant]
     Active Substance: ALFUZOSIN
  6. PARACETAMOL [Concomitant]
     Active Substance: ACETAMINOPHEN
  7. CALCIPARINE [Concomitant]
     Active Substance: HEPARIN CALCIUM
  8. ESOMEPRAZOLE/ESOMEPRAZOLE MAGNESIUM/ESOMEPRAZOLE SODIUM [Concomitant]
  9. ALLOPURINOL. [Concomitant]
     Active Substance: ALLOPURINOL
  10. AMLODIPINE [Concomitant]
     Active Substance: AMLODIPINE BESYLATE
  11. PREGABALIN. [Concomitant]
     Active Substance: PREGABALIN
  12. GLICLAZIDE [Concomitant]
     Active Substance: GLICLAZIDE
  13. DERMOVAL [Concomitant]
  14. FOLIC ACID. [Concomitant]
     Active Substance: FOLIC ACID
  15. EUPRESSYL [Concomitant]
     Active Substance: URAPIDIL
  16. NEFOPAM [Concomitant]
     Active Substance: NEFOPAM
  17. METHOTREXATE. [Suspect]
     Active Substance: METHOTREXATE
     Indication: PEMPHIGOID
     Route: 058
     Dates: start: 20181212, end: 20190214
  18. OROCAL D3 [Concomitant]
     Active Substance: CALCIUM CARBONATE\CHOLECALCIFEROL

REACTIONS (1)
  - Septic shock [Recovered/Resolved]

NARRATIVE: CASE EVENT DATE: 201812
